FAERS Safety Report 15190539 (Version 1)
Quarter: 2018Q3

REPORT INFORMATION
  Report Type: Spontaneous
  Country: BR (occurrence: BR)
  Receive Date: 20180724
  Receipt Date: 20180724
  Transmission Date: 20181010
  Serious: Yes (Hospitalization, Other)
  Sender: FDA-Public Use
  Company Number: BR-GLAXOSMITHKLINE-BR2018GSK128493

PATIENT
  Sex: Male
  Weight: 5 kg

DRUGS (2)
  1. AEROLIN [Suspect]
     Active Substance: ALBUTEROL
     Indication: BRONCHIOLITIS
     Dosage: 100 UG, QD
     Route: 055
     Dates: start: 201805
  2. FLIXOTIDE [Suspect]
     Active Substance: FLUTICASONE PROPIONATE
     Indication: BRONCHIOLITIS
     Dosage: 50 UG, BID
     Route: 055
     Dates: start: 201805

REACTIONS (4)
  - Product prescribing issue [Recovered/Resolved]
  - Product use in unapproved indication [Not Recovered/Not Resolved]
  - Drug administered to patient of inappropriate age [Not Recovered/Not Resolved]
  - Hospitalisation [Unknown]
